FAERS Safety Report 13465511 (Version 2)
Quarter: 2017Q2

REPORT INFORMATION
  Report Type: Spontaneous
  Country: BR (occurrence: BR)
  Receive Date: 20170421
  Receipt Date: 20170424
  Transmission Date: 20170830
  Serious: Yes (Hospitalization, Other)
  Sender: FDA-Public Use
  Company Number: BR-JNJFOC-20170414907

PATIENT
  Sex: Female

DRUGS (3)
  1. REMICADE [Suspect]
     Active Substance: INFLIXIMAB
     Indication: RHEUMATOID ARTHRITIS
     Route: 042
     Dates: start: 2015, end: 2016
  2. METICORTEN [Concomitant]
     Active Substance: PREDNISONE
     Route: 065
  3. METHOTREXATE. [Concomitant]
     Active Substance: METHOTREXATE
     Route: 065

REACTIONS (13)
  - Throat tightness [Recovered/Resolved]
  - Insomnia [Not Recovered/Not Resolved]
  - Colitis [Recovering/Resolving]
  - Depression [Unknown]
  - Pharyngeal disorder [Unknown]
  - Dyspepsia [Unknown]
  - Dyspnoea [Recovered/Resolved]
  - Rheumatoid arthritis [Not Recovered/Not Resolved]
  - Nasal pruritus [Recovered/Resolved]
  - Infusion related reaction [Unknown]
  - Drug effect decreased [Unknown]
  - Drug resistance [Unknown]
  - Escherichia infection [Unknown]

NARRATIVE: CASE EVENT DATE: 2015
